FAERS Safety Report 15853407 (Version 1)
Quarter: 2019Q1

REPORT INFORMATION
  Report Type: Spontaneous
  Country: US (occurrence: US)
  Receive Date: 20190120
  Receipt Date: 20190120
  Transmission Date: 20190417
  Serious: Yes (Hospitalization)
  Sender: FDA-Public Use
  Company Number: None

PATIENT
  Age: 61 Year
  Sex: Male

DRUGS (2)
  1. BOSULIF [Suspect]
     Active Substance: BOSUTINIB MONOHYDRATE
     Indication: CHRONIC MYELOID LEUKAEMIA
     Route: 048
     Dates: start: 20171007
  2. BUMEX [Concomitant]
     Active Substance: BUMETANIDE

REACTIONS (4)
  - Abdominal distension [None]
  - Therapy cessation [None]
  - Haemoglobin decreased [None]
  - Fluid retention [None]

NARRATIVE: CASE EVENT DATE: 20190114
